FAERS Safety Report 14407175 (Version 1)
Quarter: 2018Q1

REPORT INFORMATION
  Report Type: Spontaneous
  Country: US (occurrence: US)
  Receive Date: 20180116
  Receipt Date: 20180116
  Transmission Date: 20180509
  Serious: No
  Sender: FDA-Public Use
  Company Number: None

PATIENT
  Age: 58 Year
  Sex: Female

DRUGS (2)
  1. HUMIRA [Suspect]
     Active Substance: ADALIMUMAB
     Indication: OESOPHAGITIS
     Route: 058
     Dates: start: 20171215
  2. HUMIRA [Suspect]
     Active Substance: ADALIMUMAB
     Indication: GASTROOESOPHAGEAL REFLUX DISEASE
     Route: 058
     Dates: start: 20171215

REACTIONS (2)
  - Cough [None]
  - Wheezing [None]

NARRATIVE: CASE EVENT DATE: 20180101
